FAERS Safety Report 4553744-5 (Version None)
Quarter: 2004Q4

REPORT INFORMATION
  Report Type: 
  Country: None (occurrence: None)
  Receive Date: 20041227
  Receipt Date: 20041019
  Transmission Date: 20050328
  Serious: No
  Sender: FDA-Public Use
  Company Number: 04P-163-0278307-00

PATIENT
  Age: 54 Year
  Sex: Female

DRUGS (9)
  1. HUMIRA [Suspect]
     Indication: RHEUMATOID ARTHRITIS
     Dosage: 1 IN 2 WK, SUBCUTANEOUS
     Route: 058
     Dates: start: 20040818
  2. CYCLOBENZAPRINE [Concomitant]
  3. ISOM-A-PA-DICHL [Concomitant]
  4. FLUXETINE [Concomitant]
  5. METHOTREXATE [Concomitant]
  6. CELECOXIB [Concomitant]
  7. ESOMEPRAZOLE [Concomitant]
  8. FOLIC ACID [Concomitant]
  9. TRAMADOL HCL [Concomitant]

REACTIONS (1)
  - INFECTED INSECT BITE [None]
